FAERS Safety Report 11360845 (Version 1)
Quarter: 2015Q3

REPORT INFORMATION
  Report Type: Spontaneous
  Country: FR (occurrence: FR)
  Receive Date: 20150810
  Receipt Date: 20150810
  Transmission Date: 20151125
  Serious: Yes (Hospitalization, Other)
  Sender: FDA-Public Use
  Company Number: FR-PFIZER INC-2015257679

PATIENT
  Age: 68 Year
  Sex: Female

DRUGS (5)
  1. ZYPREXA [Suspect]
     Active Substance: OLANZAPINE
     Dosage: 10 MG, 1X/DAY
     Route: 048
  2. EFFEXOR [Suspect]
     Active Substance: VENLAFAXINE HYDROCHLORIDE
     Dosage: 75 MG, 1X/DAY
     Route: 048
  3. INEXIUM /01479302/ [Suspect]
     Active Substance: ESOMEPRAZOLE MAGNESIUM
     Dosage: 20 MG, 1X/DAY
     Route: 048
  4. ASASANTINE [Suspect]
     Active Substance: ASPIRIN\DIPYRIDAMOLE
     Indication: ISCHAEMIC STROKE
     Dosage: 1 DF (200MG/25MG), 1X/DAY
     Route: 048
     Dates: start: 20060101
  5. COVERSYL /00790702/ [Suspect]
     Active Substance: PERINDOPRIL
     Dosage: 2.5 MG, 1X/DAY
     Route: 048

REACTIONS (2)
  - Aortic dissection [Unknown]
  - Cerebral haematoma [Recovering/Resolving]

NARRATIVE: CASE EVENT DATE: 20150620
